FAERS Safety Report 7146666-7 (Version None)
Quarter: 2010Q4

REPORT INFORMATION
  Report Type: 
  Country: None (occurrence: None)
  Receive Date: 20101208
  Receipt Date: 20101130
  Transmission Date: 20110411
  Serious: Yes (Other)
  Sender: FDA-Public Use
  Company Number: ZA-CELGENEUS-143-21880-10120065

PATIENT
  Sex: Male

DRUGS (6)
  1. REVLIMID [Suspect]
     Route: 048
  2. THALIDOMIDE [Suspect]
     Route: 048
  3. VELCADE [Suspect]
     Route: 065
  4. ENDOXAN [Suspect]
     Route: 048
  5. STEROIDS [Suspect]
     Route: 048
  6. ZOMETA [Suspect]
     Route: 048

REACTIONS (8)
  - AMNESIA [None]
  - ARTHRALGIA [None]
  - ASTHENIA [None]
  - BONE PAIN [None]
  - ENCEPHALOPATHY [None]
  - MYALGIA [None]
  - NEUROPATHY PERIPHERAL [None]
  - NO THERAPEUTIC RESPONSE [None]
